FAERS Safety Report 10472853 (Version 1)
Quarter: 2014Q3

REPORT INFORMATION
  Report Type: Spontaneous
  Country: BR (occurrence: BR)
  Receive Date: 20140924
  Receipt Date: 20140924
  Transmission Date: 20150326
  Serious: Yes (Other)
  Sender: FDA-Public Use
  Company Number: BR-SA-2014SA126312

PATIENT
  Sex: Male

DRUGS (5)
  1. THYMOGLOBULIN [Suspect]
     Active Substance: LAPINE T-LYMPHOCYTE IMMUNE GLOBULIN
     Indication: APLASIA
     Dosage: FREQUENCY: INFUSION OF 6 HOURS A DAY?FORM: INFUSION
     Route: 065
     Dates: start: 201209
  2. HEMOGENIN [Suspect]
     Active Substance: OXYMETHOLONE
     Indication: APLASIA
     Route: 065
  3. THYMOGLOBULIN [Suspect]
     Active Substance: LAPINE T-LYMPHOCYTE IMMUNE GLOBULIN
     Indication: APLASIA
     Dosage: FREQUENCY: INFUSION OF 6 HOURS A DAY?FORM: INFUSION
     Route: 065
     Dates: start: 201303
  4. VORICONAZOLE. [Concomitant]
     Active Substance: VORICONAZOLE
     Route: 065
  5. CLONAZEPAM. [Concomitant]
     Active Substance: CLONAZEPAM
     Indication: SLEEP DISORDER
     Route: 065

REACTIONS (9)
  - Asthenia [Unknown]
  - Pyrexia [Unknown]
  - Weight increased [Unknown]
  - Cardio-respiratory arrest [Unknown]
  - Dyspnoea [Unknown]
  - Breast enlargement [Unknown]
  - Epilepsy [Unknown]
  - Somnolence [Unknown]
  - Blood pressure increased [Unknown]

NARRATIVE: CASE EVENT DATE: 201209
